FAERS Safety Report 5478577-7 (Version None)
Quarter: 2007Q4

REPORT INFORMATION
  Report Type: 
  Country: None (occurrence: None)
  Receive Date: 20071005
  Receipt Date: 20070921
  Transmission Date: 20080405
  Serious: Yes (Death, Life-Threatening, Hospitalization)
  Sender: FDA-Public Use
  Company Number: ZA-BRISTOL-MYERS SQUIBB COMPANY-13928130

PATIENT
  Age: 60 Year
  Sex: Male

DRUGS (5)
  1. EFAVIRENZ [Suspect]
     Indication: HIV INFECTION
     Route: 048
     Dates: start: 20050727
  2. LAMIVUDINE [Concomitant]
     Dosage: 30-AUG-2005-UNK
     Dates: start: 20050727, end: 20050810
  3. LOPINAVIR AND RITONAVIR [Concomitant]
     Dates: start: 20050830
  4. STAVUDINE [Concomitant]
     Dosage: 30-AUG-2005-UNK
     Dates: start: 20050727, end: 20050810
  5. SULFAMETHOXAZOLE AND TRIMETHOPRIM [Concomitant]
     Dates: start: 20050701

REACTIONS (2)
  - DEATH [None]
  - STEVENS-JOHNSON SYNDROME [None]
